FAERS Safety Report 24995636 (Version 2)
Quarter: 2025Q1

REPORT INFORMATION
  Report Type: Spontaneous
  Country: JP (occurrence: JP)
  Receive Date: 20250221
  Receipt Date: 20250305
  Transmission Date: 20250409
  Serious: Yes (Other)
  Sender: ELI LILLY AND COMPANY
  Company Number: JP-ELI_LILLY_AND_COMPANY-JP202502010309

PATIENT
  Age: 61 Year
  Sex: Female

DRUGS (1)
  1. FORTEO [Suspect]
     Active Substance: TERIPARATIDE
     Indication: Fracture treatment
     Route: 058
     Dates: start: 20241106, end: 20250128

REACTIONS (1)
  - Extraskeletal ossification [Recovered/Resolved]

NARRATIVE: CASE EVENT DATE: 20250127
